FAERS Safety Report 8142842-5 (Version None)
Quarter: 2012Q1

REPORT INFORMATION
  Report Type: 
  Country: None (occurrence: None)
  Receive Date: 20120216
  Receipt Date: 20120213
  Transmission Date: 20120608
  Serious: Yes (Other)
  Sender: FDA-Public Use
  Company Number: SE-AMGEN-SWESP2012002980

PATIENT
  Age: 73 Year
  Sex: Female

DRUGS (11)
  1. PROLIA [Suspect]
     Indication: STEROID THERAPY
  2. CORTISONE ACETATE [Concomitant]
     Indication: SJOGREN'S SYNDROME
  3. VITAMIN B-12 [Concomitant]
     Dosage: 1 DF, Q2MO
  4. PROLIA [Suspect]
     Indication: OSTEOPOROSIS
     Dosage: UNK
     Dates: start: 20120102
  5. CORTISONE ACETATE [Concomitant]
     Indication: SYSTEMIC LUPUS ERYTHEMATOSUS
  6. KALCIPOS-D [Concomitant]
  7. ATACAND [Concomitant]
     Indication: HYPERTENSION
  8. EYE Q [Concomitant]
  9. ACETAMINOPHEN W/ CODEINE [Concomitant]
     Indication: PAIN
     Dosage: UNK UNK, PRN
  10. Q10 [Concomitant]
  11. RISEDRONATE SODIUM [Concomitant]
     Indication: OSTEOPOROSIS
     Dosage: UNK UNK, QWK

REACTIONS (8)
  - BALANCE DISORDER [None]
  - PARAESTHESIA [None]
  - DEAFNESS [None]
  - URINARY INCONTINENCE [None]
  - THINKING ABNORMAL [None]
  - HYPOAESTHESIA [None]
  - MALAISE [None]
  - MOTOR DYSFUNCTION [None]
